FAERS Safety Report 20677711 (Version 1)
Quarter: 2022Q2

REPORT INFORMATION
  Report Type: Spontaneous
  Country: US (occurrence: US)
  Receive Date: 20220406
  Receipt Date: 20220406
  Transmission Date: 20220721
  Serious: No
  Sender: FDA-Public Use
  Company Number: US-GW PHARMA-202204USGW01732

PATIENT
  Sex: Male

DRUGS (3)
  1. EPIDIOLEX [Suspect]
     Active Substance: CANNABIDIOL
     Indication: Lennox-Gastaut syndrome
     Dosage: 40 MILLIGRAM, BID
     Route: 048
     Dates: start: 20220322, end: 20220329
  2. EPIDIOLEX [Suspect]
     Active Substance: CANNABIDIOL
     Dosage: 75 MILLIGRAM, BID FOR 7 DAYS, THEN 75 MILLIGRAM MORNING AND 150 MILLIGRAM IN THE EVENING
     Route: 048
     Dates: start: 20220330
  3. VIGABATRIN [Concomitant]
     Active Substance: VIGABATRIN
     Indication: Product used for unknown indication
     Dosage: UNK
     Route: 065

REACTIONS (1)
  - Insomnia [Unknown]

NARRATIVE: CASE EVENT DATE: 20220101
